FAERS Safety Report 9287053 (Version 2)
Quarter: 2013Q4

REPORT INFORMATION
  Report Type: Report from Study
  Country: JP (occurrence: JP)
  Receive Date: 20130513
  Receipt Date: 20131231
  Transmission Date: 20140711
  Serious: Yes (Hospitalization, Disabling)
  Sender: FDA-Public Use
  Company Number: JP-SHIRE-SPV1-2010-01071

PATIENT
  Age: 48 Year
  Sex: Male

DRUGS (22)
  1. 405 (LANTHANUM CARBONATE) [Suspect]
     Indication: HYPERPHOSPHATAEMIA
     Dosage: UNK UNK, UNKNOWN
     Route: 048
     Dates: start: 20100320
  2. 405 (LANTHANUM CARBONATE) [Suspect]
     Dosage: 750 MG, UNKNOWN (IMMEDIATELY AFTER MEALS)
     Route: 048
     Dates: start: 20091120, end: 20091211
  3. 405 (LANTHANUM CARBONATE) [Suspect]
     Dosage: 1500 MG, UNKNOWN (IMMEDIATELY AFTER MEALS)
     Route: 048
     Dates: start: 20091212, end: 20100319
  4. 405 (LANTHANUM CARBONATE) [Suspect]
     Indication: HYPERPHOSPHATAEMIA
     Dosage: 2250 MG, UNKNOWN
     Route: 048
     Dates: start: 20120714, end: 201211
  5. CALTAN [Concomitant]
     Indication: HYPERPHOSPHATAEMIA
     Dosage: 3000 MG, UNKNOWN
     Route: 048
     Dates: start: 20091009
  6. TICPILONE [Concomitant]
     Indication: PRODUCT USED FOR UNKNOWN INDICATION
     Dosage: 200 MG, UNKNOWN
     Route: 048
  7. LOPRESSOR [Concomitant]
     Indication: PRODUCT USED FOR UNKNOWN INDICATION
     Dosage: 20 MG, UNKNOWN
     Route: 048
  8. TANATRIL [Concomitant]
     Indication: PRODUCT USED FOR UNKNOWN INDICATION
     Dosage: 5 MG, UNKNOWN
     Route: 048
  9. LASIX                              /00032601/ [Concomitant]
     Indication: PRODUCT USED FOR UNKNOWN INDICATION
     Dosage: 120 MG, UNKNOWN
     Route: 048
  10. ADALAT CR [Concomitant]
     Indication: PRODUCT USED FOR UNKNOWN INDICATION
     Dosage: 40 MG, UNKNOWN
     Route: 048
  11. OMEPRAL                            /00661201/ [Concomitant]
     Indication: ABDOMINAL DISCOMFORT
     Dosage: 10 MG, UNKNOWN
     Route: 048
  12. NESP [Concomitant]
     Indication: PRODUCT USED FOR UNKNOWN INDICATION
     Dosage: 20 UG, UNK
     Route: 042
     Dates: start: 20091002
  13. FESIN [Concomitant]
     Indication: PRODUCT USED FOR UNKNOWN INDICATION
     Dosage: 1 DF, UNKNOWN
     Route: 042
     Dates: start: 20091002
  14. SEISHOKU [Concomitant]
     Indication: PRODUCT USED FOR UNKNOWN INDICATION
     Dosage: 20 ML, UNKNOWN
     Route: 042
     Dates: start: 20091002
  15. NOVOLIN 30R                        /00030505/ [Concomitant]
     Indication: PRODUCT USED FOR UNKNOWN INDICATION
     Dosage: 18 IU, UNKNOWN
     Route: 058
  16. ROCALTROL [Concomitant]
     Indication: PRODUCT USED FOR UNKNOWN INDICATION
     Dosage: 1 ?G, 1X/WEEK
     Route: 048
     Dates: start: 20111210, end: 20120607
  17. ROCALTROL [Concomitant]
     Dosage: 0.25 ?G, UNKNOWN
     Route: 065
     Dates: start: 20120609, end: 20120907
  18. SEVELAMER HYDROCHLORIDE [Concomitant]
     Indication: PRODUCT USED FOR UNKNOWN INDICATION
     Dosage: 2 DF, UNKNOWN
     Route: 048
     Dates: start: 20120609, end: 20120810
  19. SEVELAMER HYDROCHLORIDE [Concomitant]
     Dosage: 3 DF, UNKNOWN
     Route: 048
     Dates: start: 20120811, end: 20120907
  20. SEVELAMER HYDROCHLORIDE [Concomitant]
     Dosage: 5 DF, UNKNOWN
     Route: 048
     Dates: start: 20120908
  21. OXAROL [Concomitant]
     Indication: PRODUCT USED FOR UNKNOWN INDICATION
     Dosage: 2.5 ?G, 1X/WEEK
     Route: 042
     Dates: start: 20120427, end: 20120810
  22. OXAROL [Concomitant]
     Dosage: 5 ?G, 1X/WEEK
     Route: 042
     Dates: start: 20120817

REACTIONS (4)
  - Gallbladder polyp [Not Recovered/Not Resolved]
  - Cholelithiasis [Not Recovered/Not Resolved]
  - Abdominal pain [Recovering/Resolving]
  - Nausea [Recovered/Resolved]
